FAERS Safety Report 21963078 (Version 1)
Quarter: 2023Q1

REPORT INFORMATION
  Report Type: Spontaneous
  Country: US (occurrence: None)
  Receive Date: 20230205
  Receipt Date: 20230205
  Transmission Date: 20230418
  Serious: No
  Sender: FDA-Public Use
  Company Number: None

PATIENT
  Age: 82 Year
  Sex: Female

DRUGS (1)
  1. MONISTAT 7 [Suspect]
     Active Substance: MICONAZOLE NITRATE
     Indication: Fungal infection
     Dosage: OTHER QUANTITY : 7 APPLICATOR;?FREQUENCY : AT BEDTIME;?
     Route: 067
     Dates: start: 20230201, end: 20230205

REACTIONS (2)
  - Vulvovaginal burning sensation [None]
  - Instillation site irritation [None]

NARRATIVE: CASE EVENT DATE: 20230201
